FAERS Safety Report 17208619 (Version 3)
Quarter: 2020Q1

REPORT INFORMATION
  Report Type: Spontaneous
  Country: US (occurrence: US)
  Receive Date: 20191227
  Receipt Date: 20200323
  Transmission Date: 20200409
  Serious: Yes (Hospitalization)
  Sender: FDA-Public Use
  Company Number: US-PFIZER INC-2019554591

PATIENT
  Age: 76 Year
  Sex: Female

DRUGS (1)
  1. XELJANZ XR [Suspect]
     Active Substance: TOFACITINIB CITRATE
     Dosage: 11 MG, UNK
     Dates: end: 20200228

REACTIONS (5)
  - Tuberculin test positive [Unknown]
  - Pain in extremity [Unknown]
  - Pneumonia [Unknown]
  - Influenza [Unknown]
  - Arthralgia [Unknown]
